FAERS Safety Report 4830685-7 (Version None)
Quarter: 2005Q4

REPORT INFORMATION
  Report Type: 
  Country: None (occurrence: None)
  Receive Date: 20051114
  Receipt Date: 20051107
  Transmission Date: 20060501
  Serious: Yes (Death)
  Sender: FDA-Public Use
  Company Number: HQWYE037114OCT05

PATIENT
  Age: 80 Year
  Sex: Female

DRUGS (6)
  1. TIGECYCLINE (TIGECYCLINE, INJECTION) [Suspect]
     Indication: PNEUMONIA
     Dosage: 100 MG LOAD, THEN 50 MG TWICE DAILY, INTRAVENOUS
     Route: 042
     Dates: start: 20051005, end: 20051011
  2. DIAZEPAM [Concomitant]
  3. FUROSEMIDE [Concomitant]
  4. RANITIDINE [Concomitant]
  5. DIGOXIN [Concomitant]
  6. VERAPAMIL [Concomitant]

REACTIONS (9)
  - ANAEMIA [None]
  - ASPIRATION TRACHEAL ABNORMAL [None]
  - CARDIAC FAILURE [None]
  - MONOCYTE PERCENTAGE DECREASED [None]
  - MULTI-ORGAN FAILURE [None]
  - PSEUDOMONAS INFECTION [None]
  - SEPTIC SHOCK [None]
  - STAPHYLOCOCCAL INFECTION [None]
  - THROMBOCYTOPENIA [None]
